FAERS Safety Report 21980426 (Version 1)
Quarter: 2023Q1

REPORT INFORMATION
  Report Type: Report from Study
  Country: SA (occurrence: SA)
  Receive Date: 20230211
  Receipt Date: 20230211
  Transmission Date: 20230417
  Serious: Yes (Other)
  Sender: FDA-Public Use
  Company Number: SA-AMGEN-SAUSL2022140342

PATIENT
  Age: 49 Year
  Sex: Male

DRUGS (1)
  1. VECTIBIX [Suspect]
     Active Substance: PANITUMUMAB
     Indication: Product used for unknown indication
     Dosage: UNK UNK, Q3WK
     Route: 065
     Dates: start: 20220724

REACTIONS (8)
  - Secondary immunodeficiency [Unknown]
  - Sensitive skin [Unknown]
  - Acne [Unknown]
  - Off label use [Unknown]
  - Intentional dose omission [Unknown]
  - Splinter haemorrhages [Unknown]
  - Chest discomfort [Unknown]
  - Disease susceptibility [Unknown]

NARRATIVE: CASE EVENT DATE: 20220724
